FAERS Safety Report 23819320 (Version 1)
Quarter: 2024Q2

REPORT INFORMATION
  Report Type: Spontaneous
  Country: DE (occurrence: DE)
  Receive Date: 20240506
  Receipt Date: 20240506
  Transmission Date: 20240716
  Serious: Yes (Other)
  Sender: FDA-Public Use
  Company Number: DE-002147023-NVSC2024DE064556

PATIENT
  Age: 40 Year
  Sex: Female
  Weight: 71 kg

DRUGS (1)
  1. COSENTYX [Suspect]
     Active Substance: SECUKINUMAB
     Indication: Ankylosing spondylitis
     Dosage: 150 MG, QMO
     Route: 058
     Dates: start: 202401, end: 202403

REACTIONS (3)
  - Mouth ulceration [Recovering/Resolving]
  - Vaginal ulceration [Recovering/Resolving]
  - Fungal infection [Unknown]

NARRATIVE: CASE EVENT DATE: 20240201
